FAERS Safety Report 21513843 (Version 1)
Quarter: 2022Q4

REPORT INFORMATION
  Report Type: Spontaneous
  Country: US (occurrence: None)
  Receive Date: 20221027
  Receipt Date: 20221027
  Transmission Date: 20230113
  Serious: No
  Sender: FDA-Public Use
  Company Number: 2022A350225

PATIENT
  Age: 66 Year
  Sex: Male
  Weight: 61.2 kg

DRUGS (2)
  1. EVUSHELD [Suspect]
     Active Substance: CILGAVIMAB\TIXAGEVIMAB
     Indication: Immunodeficiency
     Dosage: ONCE/SINGLE ADMINISTRATION
     Route: 030
     Dates: start: 2021
  2. EVUSHELD [Suspect]
     Active Substance: CILGAVIMAB\TIXAGEVIMAB
     Indication: Immunodeficiency
     Dosage: ONCE/SINGLE ADMINISTRATION
     Route: 030
     Dates: start: 20221013

REACTIONS (4)
  - Single component of a two-component product administered [Unknown]
  - Pyrexia [Recovering/Resolving]
  - Feeling cold [Recovering/Resolving]
  - Tremor [Recovering/Resolving]

NARRATIVE: CASE EVENT DATE: 20210101
